FAERS Safety Report 25879879 (Version 2)
Quarter: 2025Q4

REPORT INFORMATION
  Report Type: Report from Study
  Country: US (occurrence: US)
  Receive Date: 20251004
  Receipt Date: 20251128
  Transmission Date: 20260118
  Serious: Yes (Hospitalization)
  Sender: RECORDATI
  Company Number: US-ORPHANEU-2025006896

PATIENT
  Sex: Male
  Weight: 6.122 kg

DRUGS (3)
  1. CARBAGLU [Suspect]
     Active Substance: CARGLUMIC ACID
     Indication: Product used for unknown indication
     Dosage: 1600 MG, PER DAY
     Dates: start: 2025, end: 2025
  2. CARBAGLU [Suspect]
     Active Substance: CARGLUMIC ACID
     Dosage: 400 MG, QID
     Dates: start: 2025
  3. CARBAGLU [Suspect]
     Active Substance: CARGLUMIC ACID
     Dosage: 400 MG, QID
     Dates: start: 2025

REACTIONS (3)
  - Renal disorder [Unknown]
  - Liver disorder [Unknown]
  - Cardiac disorder [Unknown]

NARRATIVE: CASE EVENT DATE: 20250101
